FAERS Safety Report 6221029-7 (Version None)
Quarter: 2009Q2

REPORT INFORMATION
  Report Type: 
  Country: None (occurrence: None)
  Receive Date: 20090610
  Receipt Date: 20090605
  Transmission Date: 20091009
  Serious: Yes (Hospitalization)
  Sender: FDA-Public Use
  Company Number: A0789563A

PATIENT
  Age: 68 Year
  Sex: Male

DRUGS (7)
  1. LOVAZA [Suspect]
     Indication: PROPHYLAXIS
     Dosage: 1000MG PER DAY
     Route: 048
     Dates: start: 20040405, end: 20090507
  2. LANTUS [Suspect]
     Route: 058
     Dates: start: 20050404
  3. PLAVIX [Concomitant]
     Dosage: 75MG PER DAY
     Route: 048
     Dates: start: 20090301
  4. ACETYLSALICYLIC ACID SRT [Concomitant]
     Dosage: 325MG PER DAY
     Route: 048
     Dates: start: 20050301
  5. LISINOPRIL [Concomitant]
     Dosage: 5MG PER DAY
     Route: 048
     Dates: start: 20050301
  6. PRAVACHOL [Concomitant]
     Dosage: 10MG PER DAY
     Route: 048
     Dates: start: 20050301
  7. MORPHINE [Concomitant]
     Dates: start: 20090501

REACTIONS (1)
  - CHOLELITHIASIS [None]
